FAERS Safety Report 12368215 (Version 2)
Quarter: 2016Q2

REPORT INFORMATION
  Report Type: Spontaneous
  Country: JP (occurrence: JP)
  Receive Date: 20160513
  Receipt Date: 20160601
  Transmission Date: 20160815
  Serious: No
  Sender: FDA-Public Use
  Company Number: JP-DSJP-DSJ-2016-111551AA

PATIENT

DRUGS (22)
  1. PANITUMUMAB [Suspect]
     Active Substance: PANITUMUMAB
     Indication: RECTAL CANCER STAGE IV
     Dosage: UNK
     Route: 065
  2. CETUXIMAB [Suspect]
     Active Substance: CETUXIMAB
     Indication: RECTAL CANCER STAGE IV
     Dosage: UNK
     Route: 065
  3. AMLODIPINE                         /00972402/ [Concomitant]
     Active Substance: AMLODIPINE BESYLATE
     Indication: HYPERTENSION
     Dosage: 5 MG, QD
     Route: 048
     Dates: start: 20140328, end: 20151220
  4. DAIKENCHUTO [Concomitant]
     Active Substance: HERBALS
     Indication: COLON CANCER
     Dosage: 2.5 G, TID
     Route: 048
     Dates: start: 20141213, end: 20151220
  5. LIXIANA TABLETS [Suspect]
     Active Substance: EDOXABAN TOSILATE MONOHYDRATE
     Indication: DEEP VEIN THROMBOSIS
     Dosage: 60 MG, QD
     Route: 048
     Dates: start: 20150806, end: 20150826
  6. TOPOTECIN INTRAVENOUS DRIP INFUSION [Suspect]
     Active Substance: IRINOTECAN HYDROCHLORIDE
     Indication: RECTAL CANCER STAGE IV
     Dosage: UNK
     Route: 065
  7. BEVACIZUMAB [Suspect]
     Active Substance: BEVACIZUMAB
     Indication: RECTAL CANCER STAGE IV
     Dosage: UNK
     Route: 065
  8. WARFARIN                           /00014803/ [Suspect]
     Active Substance: WARFARIN
     Indication: DEEP VEIN THROMBOSIS
     Dosage: 3.5 MG, QD
     Route: 048
     Dates: start: 20110615, end: 20150804
  9. FAMOTIDINE. [Concomitant]
     Active Substance: FAMOTIDINE
     Indication: GASTRIC ULCER
     Dosage: 10 MG, BID
     Route: 048
     Dates: start: 20141204, end: 20151127
  10. TS-1 [Suspect]
     Active Substance: GIMERACIL\OTERACIL\TEGAFUR
     Indication: RECTAL CANCER STAGE IV
     Dosage: UNK
     Route: 065
  11. FLUOROURACIL. [Suspect]
     Active Substance: FLUOROURACIL
     Indication: METASTASES TO LIVER
  12. LEVOFOLINATE CALCIUM [Suspect]
     Active Substance: LEVOLEUCOVORIN CALCIUM
     Indication: RECTAL CANCER STAGE IV
     Dosage: UNK
     Route: 065
  13. URSODEOXYCHOLIC ACID [Concomitant]
     Active Substance: URSODIOL
     Indication: CHOLECYSTITIS
     Dosage: 100 MG, TID
     Route: 048
     Dates: start: 20141105, end: 20151211
  14. LIXIANA TABLETS [Suspect]
     Active Substance: EDOXABAN TOSILATE MONOHYDRATE
     Dosage: 30 MG, QD
     Route: 048
     Dates: start: 20150902, end: 20151201
  15. TOPOTECIN INTRAVENOUS DRIP INFUSION [Suspect]
     Active Substance: IRINOTECAN HYDROCHLORIDE
     Dosage: UNK
     Route: 065
  16. CAPECITABINE. [Suspect]
     Active Substance: CAPECITABINE
     Indication: RECTAL CANCER STAGE IV
     Dosage: UNK
     Route: 065
  17. FLUOROURACIL. [Suspect]
     Active Substance: FLUOROURACIL
     Indication: RECTAL CANCER STAGE IV
     Dosage: 1600 MG, ONCE EVERY 1 WK
     Route: 013
     Dates: start: 20150528, end: 20151028
  18. LOXOPROFEN                         /00890702/ [Concomitant]
     Active Substance: LOXOPROFEN
     Indication: CANCER PAIN
     Dosage: 60 MG, TID
     Route: 048
     Dates: start: 20150403, end: 20151127
  19. OXALIPLATIN. [Suspect]
     Active Substance: OXALIPLATIN
     Indication: RECTAL CANCER STAGE IV
     Dosage: UNK
     Route: 065
  20. URSODEOXYCHOLIC ACID [Concomitant]
     Active Substance: URSODIOL
     Indication: HEPATIC FUNCTION ABNORMAL
  21. LYRICA [Concomitant]
     Active Substance: PREGABALIN
     Indication: NEURALGIA
     Dosage: 150 MG, BID
     Route: 048
     Dates: start: 20150330, end: 20151220
  22. TAPENTA [Concomitant]
     Active Substance: TAPENTADOL HYDROCHLORIDE
     Indication: CANCER PAIN
     Dosage: 25 MG, BID
     Route: 048
     Dates: start: 20150419, end: 20151220

REACTIONS (3)
  - Off label use [Unknown]
  - Haemorrhage [Recovered/Resolved]
  - International normalised ratio increased [Recovered/Resolved]

NARRATIVE: CASE EVENT DATE: 20150805
